FAERS Safety Report 5219899-4 (Version None)
Quarter: 2006Q4

REPORT INFORMATION
  Report Type: 
  Country: None (occurrence: None)
  Receive Date: 20061201
  Receipt Date: 20060717
  Transmission Date: 20070319
  Serious: No
  Sender: FDA-Public Use
  Company Number: 2006PV017722

PATIENT
  Age: 62 Year
  Sex: Female
  Weight: 124.2856 kg

DRUGS (3)
  1. BYETTA [Suspect]
     Indication: BLOOD PRESSURE INCREASED
     Dosage: 5 MCG;BID;SC
     Route: 058
     Dates: start: 20060601
  2. METFORMIN HCL [Concomitant]
  3. PREVACID [Concomitant]

REACTIONS (6)
  - BACK PAIN [None]
  - COLD SWEAT [None]
  - CONSTIPATION [None]
  - DIARRHOEA [None]
  - FEELING HOT [None]
  - MUSCLE SPASMS [None]
